FAERS Safety Report 6965699-4 (Version None)
Quarter: 2010Q3

REPORT INFORMATION
  Report Type: 
  Country: None (occurrence: None)
  Receive Date: 20100903
  Receipt Date: 20100830
  Transmission Date: 20110219
  Serious: Yes (Disabling)
  Sender: FDA-Public Use
  Company Number: US-ROCHE-721897

PATIENT
  Sex: Female
  Weight: 63.5 kg

DRUGS (2)
  1. KLONOPIN [Suspect]
     Dosage: OTHER INDICATION: ANXIETY
     Route: 048
     Dates: start: 20030501
  2. BENADRYL [Suspect]
     Dosage: FREQUENCY: EVERY NIGHT (HS)
     Route: 048
     Dates: start: 20010101, end: 20100818

REACTIONS (6)
  - DYSKINESIA [None]
  - LIP DISORDER [None]
  - ORAL CANDIDIASIS [None]
  - SURGERY [None]
  - TARDIVE DYSKINESIA [None]
  - TONGUE DISORDER [None]
